FAERS Safety Report 18206360 (Version 2)
Quarter: 2023Q1

REPORT INFORMATION
  Report Type: Spontaneous
  Country: IT (occurrence: IT)
  Receive Date: 20200828
  Receipt Date: 20230210
  Transmission Date: 20230418
  Serious: Yes (Other)
  Sender: FDA-Public Use
  Company Number: IT-MINISAL02-631004

PATIENT
  Age: 57 Year
  Sex: Female

DRUGS (5)
  1. ALPRAZOLAM [Suspect]
     Active Substance: ALPRAZOLAM
     Indication: Product used for unknown indication
     Dosage: 10 MILLIGRAM (TOTAL)
     Route: 048
     Dates: start: 20200804, end: 20200804
  2. DIAZEPAM [Suspect]
     Active Substance: DIAZEPAM
     Indication: Product used for unknown indication
     Dosage: 100 MILLIGRAM (TOTAL)
     Route: 048
  3. ZOLPIDEM [Suspect]
     Active Substance: ZOLPIDEM TARTRATE
     Indication: Product used for unknown indication
     Dosage: 150 MILLIGRAM (TOTAL)
     Route: 048
     Dates: start: 20200804, end: 20200804
  4. ALPRAZOLAM [Suspect]
     Active Substance: ALPRAZOLAM
     Indication: Product used for unknown indication
     Dosage: 15 MILLIGRAM (TOTAL)
     Route: 048
     Dates: start: 20200804, end: 20200804
  5. ESCITALOPRAM [Suspect]
     Active Substance: ESCITALOPRAM OXALATE
     Indication: Product used for unknown indication
     Dosage: 400 MILLIGRAM (TOTAL)
     Route: 048
     Dates: start: 20200804, end: 20200804

REACTIONS (5)
  - Rhabdomyolysis [Recovering/Resolving]
  - Sopor [Recovering/Resolving]
  - Immobilisation prolonged [Recovering/Resolving]
  - Drug screen positive [Recovering/Resolving]
  - Substance abuse [Recovering/Resolving]

NARRATIVE: CASE EVENT DATE: 20200804
